FAERS Safety Report 10981571 (Version 1)
Quarter: 2015Q1

REPORT INFORMATION
  Report Type: Spontaneous
  Country: US (occurrence: None)
  Receive Date: 20150227
  Receipt Date: 20150227
  Transmission Date: 20150721
  Serious: Yes (Life-Threatening)
  Sender: FDA-Public Use
  Company Number: LMI-2014-00173

PATIENT
  Age: 80 Year
  Sex: Male
  Weight: 70.11 kg

DRUGS (1)
  1. DEFINITY [Suspect]
     Active Substance: PERFLUTREN
     Indication: ECHOCARDIOGRAM
     Dosage: LESS THAN 1 ML (2 ML DEFINITIY DILUTED IN 8 ML PRESERVATIVE FREE NORMAL SALINE)
     Route: 040
     Dates: start: 20140211, end: 20140211

REACTIONS (2)
  - Ventricular tachycardia [None]
  - Cardiac arrest [None]

NARRATIVE: CASE EVENT DATE: 20140211
